FAERS Safety Report 9457349 (Version 1)
Quarter: 2013Q3

REPORT INFORMATION
  Report Type: Spontaneous
  Country: FR (occurrence: None)
  Receive Date: 20130812
  Receipt Date: 20130812
  Transmission Date: 20140515
  Serious: Yes (Other)
  Sender: FDA-Public Use
  Company Number: KAD201308-000957

PATIENT
  Age: 57 Year
  Sex: Female

DRUGS (3)
  1. RIBAVIRIN (RIBAVIRIN) [Suspect]
     Indication: CHRONIC HEPATITIS C
  2. VX-950 (TELAPREVIR) [Suspect]
     Indication: CHRONIC HEPATITIS C
  3. PEGYLATED ALFA-2A INTERFERON [Suspect]
     Indication: CHRONIC HEPATITIS C

REACTIONS (5)
  - Drug reaction with eosinophilia and systemic symptoms [None]
  - Malaise [None]
  - Pyrexia [None]
  - Dyspnoea [None]
  - Lymphadenopathy [None]
